FAERS Safety Report 5108268-3 (Version None)
Quarter: 2006Q3

REPORT INFORMATION
  Report Type: 
  Country: None (occurrence: None)
  Receive Date: 20060914
  Receipt Date: 20060914
  Transmission Date: 20061208
  Serious: Yes (Hospitalization)
  Sender: FDA-Public Use
  Company Number: None

PATIENT
  Sex: Male
  Weight: 144.2439 kg

DRUGS (19)
  1. SEROQUEL [Suspect]
     Indication: SCHIZOPHRENIA
     Dosage: SEE IMAGE
     Route: 048
  2. NOVOLIN R [Concomitant]
  3. VENTOLIN [Concomitant]
  4. ATROVENT [Concomitant]
  5. ABILIFY [Concomitant]
  6. LORTAB [Concomitant]
  7. XANAX XR [Concomitant]
  8. ZITHROMAX [Concomitant]
  9. PULMICORT [Concomitant]
  10. PEPCID [Concomitant]
  11. NEURONTIN [Concomitant]
  12. LASIX [Concomitant]
  13. KETOPROFEN [Concomitant]
  14. FORADIL [Concomitant]
  15. EFFEXOR XR [Concomitant]
  16. CALAN [Concomitant]
  17. AMBIEN [Concomitant]
  18. AMARYL [Concomitant]
  19. SOLU-MEDROL [Concomitant]

REACTIONS (4)
  - BLOOD GLUCOSE INCREASED [None]
  - BRONCHITIS [None]
  - DECREASED APPETITE [None]
  - WEIGHT INCREASED [None]
